FAERS Safety Report 9369023 (Version 1)
Quarter: 2013Q2

REPORT INFORMATION
  Report Type: Spontaneous
  Country: ES (occurrence: None)
  Receive Date: 20130621
  Receipt Date: 20130621
  Transmission Date: 20140414
  Serious: Yes (Hospitalization)
  Sender: FDA-Public Use
  Company Number: VAL_02584_2013

PATIENT
  Age: 71 Year
  Sex: Female

DRUGS (11)
  1. CALCITRIOL [Suspect]
     Indication: HYPERPARATHYROIDISM PRIMARY
  2. CALCITRIOL [Suspect]
     Indication: POST PROCEDURAL COMPLICATION
  3. CALCITRIOL [Suspect]
     Indication: HYPOTHYROIDISM
  4. CALCIUM CARBONATE [Suspect]
     Indication: HYPERPARATHYROIDISM PRIMARY
     Route: 048
  5. CALCIUM CARBONATE [Suspect]
     Indication: POST PROCEDURAL COMPLICATION
     Route: 048
  6. CALCIUM CARBONATE [Suspect]
     Indication: HYPOTHYROIDISM
     Route: 048
  7. LEVOTHYROXINE (LEVOTHYROXINE) [Suspect]
     Indication: HYPERPARATHYROIDISM PRIMARY
  8. LEVOTHYROXINE (LEVOTHYROXINE) [Suspect]
     Indication: POST PROCEDURAL COMPLICATION
  9. LEVOTHYROXINE (LEVOTHYROXINE) [Suspect]
     Indication: HYPOTHYROIDISM
  10. LISINOPRIL [Concomitant]
  11. HYDROCHLOROTHIAZIDE [Concomitant]

REACTIONS (10)
  - Milk-alkali syndrome [None]
  - Nocturia [None]
  - Polyuria [None]
  - Fatigue [None]
  - Nervousness [None]
  - Insomnia [None]
  - Headache [None]
  - Hypercalcaemia [None]
  - Metabolic alkalosis [None]
  - Renal failure [None]
